FAERS Safety Report 9399769 (Version 1)
Quarter: 2013Q3

REPORT INFORMATION
  Report Type: Spontaneous
  Country: US (occurrence: US)
  Receive Date: 20130710
  Receipt Date: 20130710
  Transmission Date: 20140515
  Serious: Yes (Hospitalization)
  Sender: FDA-Public Use
  Company Number: FK201203422

PATIENT
  Age: 14 Year
  Sex: Male

DRUGS (1)
  1. FLUDARABINE [Suspect]
     Indication: ACUTE LYMPHOCYTIC LEUKAEMIA

REACTIONS (16)
  - Leukoencephalopathy [None]
  - Pyrexia [None]
  - Pain [None]
  - Chills [None]
  - Paraesthesia [None]
  - Hyperreflexia [None]
  - Peroneal nerve palsy [None]
  - Clonus [None]
  - Gait disturbance [None]
  - Anxiety [None]
  - Somnolence [None]
  - Disorientation [None]
  - Demyelination [None]
  - Graft versus host disease [None]
  - Sepsis [None]
  - Blindness [None]
